FAERS Safety Report 8983346 (Version 1)
Quarter: 2012Q4

REPORT INFORMATION
  Report Type: 
  Country: US (occurrence: US)
  Receive Date: 20121224
  Receipt Date: 20121224
  Transmission Date: 20130627
  Serious: No
  Sender: FDA-Public Use
  Company Number: US-009507513-1212USA008596

PATIENT
  Sex: Male

DRUGS (2)
  1. FINASTERIDE [Suspect]
     Route: 048
  2. PROPECIA [Suspect]
     Dosage: UNK
     Route: 048
     Dates: start: 2002

REACTIONS (1)
  - Alopecia [Unknown]
